FAERS Safety Report 21327854 (Version 2)
Quarter: 2022Q3

REPORT INFORMATION
  Report Type: Spontaneous
  Country: SG (occurrence: None)
  Receive Date: 20220913
  Receipt Date: 20220922
  Transmission Date: 20221027
  Serious: Yes (Life-Threatening, Hospitalization, Other)
  Sender: FDA-Public Use
  Company Number: SG-Unichem Pharmaceuticals (USA) Inc-UCM202209-000925

PATIENT
  Sex: Female

DRUGS (3)
  1. AMLODIPINE [Suspect]
     Active Substance: AMLODIPINE BESYLATE
     Indication: Toxicity to various agents
     Dosage: ESTIMATED 350 MG
  2. FLUOXETINE [Suspect]
     Active Substance: FLUOXETINE HYDROCHLORIDE
     Indication: Toxicity to various agents
     Dosage: UNKNOWN
  3. ZOPICLONE [Suspect]
     Active Substance: ZOPICLONE
     Indication: Toxicity to various agents
     Dosage: UNKNOWN

REACTIONS (2)
  - Vasoplegia syndrome [Recovered/Resolved]
  - Toxicity to various agents [Unknown]
